FAERS Safety Report 8514170-7 (Version None)
Quarter: 2012Q3

REPORT INFORMATION
  Report Type: 
  Country: None (occurrence: None)
  Receive Date: 20120717
  Receipt Date: 20120710
  Transmission Date: 20120928
  Serious: Yes (Other)
  Sender: FDA-Public Use
  Company Number: US-UCBSA-059847

PATIENT
  Age: 35 Year
  Sex: Male
  Weight: 99.79 kg

DRUGS (2)
  1. CIMZIA [Suspect]
     Indication: CROHN'S DISEASE
     Dates: start: 20101201, end: 20120521
  2. AZATHIOPRINE [Concomitant]
     Dosage: 200 (UNITS UNSPECIFIED)/DAY, FOR SEVERAL YEARS

REACTIONS (1)
  - HERPES ZOSTER [None]
